FAERS Safety Report 16678286 (Version 1)
Quarter: 2019Q3

REPORT INFORMATION
  Report Type: Spontaneous
  Country: US (occurrence: US)
  Receive Date: 20190807
  Receipt Date: 20190807
  Transmission Date: 20191004
  Serious: No
  Sender: FDA-Public Use
  Company Number: US-TEVA-2019-US-1086473

PATIENT
  Sex: Female
  Weight: 69 kg

DRUGS (1)
  1. PROAIR HFA [Suspect]
     Active Substance: ALBUTEROL SULFATE
     Indication: COUGH
     Dosage: TWO TO THREE PUFFS BY MOUTH EVERY FOUR TO SIX HOURS AS NEEDED
     Route: 065

REACTIONS (1)
  - Product use in unapproved indication [Unknown]
